FAERS Safety Report 12733587 (Version 1)
Quarter: 2016Q3

REPORT INFORMATION
  Report Type: Report from Study
  Country: US (occurrence: US)
  Receive Date: 20160912
  Receipt Date: 20160912
  Transmission Date: 20161109
  Serious: Yes (Other)
  Sender: FDA-Public Use
  Company Number: US-ROCHE-1826367

PATIENT
  Sex: Female

DRUGS (7)
  1. CAPECITABINE. [Suspect]
     Active Substance: CAPECITABINE
     Indication: BREAST CANCER
     Dosage: DAYS 1 -14
     Route: 065
  2. DOCETAXEL. [Suspect]
     Active Substance: DOCETAXEL
     Indication: BREAST CANCER
     Dosage: DAY 1
     Route: 065
  3. BEVACIZUMAB [Suspect]
     Active Substance: BEVACIZUMAB
     Indication: BREAST CANCER
     Route: 042
  4. DOXORUBICIN [Suspect]
     Active Substance: DOXORUBICIN
     Indication: BREAST CANCER
     Route: 065
  5. CYCLOPHOSPHAMIDE. [Suspect]
     Active Substance: CYCLOPHOSPHAMIDE
     Indication: BREAST CANCER
     Dosage: 4 CYCLES
     Route: 065
  6. GEMCITABINE [Suspect]
     Active Substance: GEMCITABINE\GEMCITABINE HYDROCHLORIDE
     Indication: BREAST CANCER
     Dosage: DAYS 1 AND 8
     Route: 065
  7. DOCETAXEL. [Suspect]
     Active Substance: DOCETAXEL
     Dosage: DAY 1
     Route: 065

REACTIONS (68)
  - Otitis media [Unknown]
  - Pharyngitis [Unknown]
  - Gamma-glutamyltransferase increased [Unknown]
  - Back pain [Unknown]
  - Trismus [Unknown]
  - Depression [Unknown]
  - Vaginal perforation [Unknown]
  - Skin disorder [Unknown]
  - Device related infection [Unknown]
  - Sinusitis [Unknown]
  - Skin infection [Unknown]
  - Hypokalaemia [Unknown]
  - Insomnia [Unknown]
  - Urinary tract pain [Unknown]
  - Pharyngeal inflammation [Unknown]
  - Respiratory failure [Unknown]
  - Reproductive tract disorder [Unknown]
  - Abdominal infection [Unknown]
  - Troponin I increased [Unknown]
  - Hypocalcaemia [Unknown]
  - Uterine haemorrhage [Unknown]
  - Vaginal haemorrhage [Unknown]
  - Enterocolitis infectious [Unknown]
  - Hypophosphataemia [Unknown]
  - Leukaemia [Unknown]
  - Breast pain [Unknown]
  - Breast disorder [Unknown]
  - Pleural effusion [Unknown]
  - Pruritus [Unknown]
  - Cholecystitis [Unknown]
  - Infective myositis [Unknown]
  - Radiation skin injury [Unknown]
  - Alkalosis [Unknown]
  - Hyponatraemia [Unknown]
  - Arthritis [Unknown]
  - Muscular weakness [Unknown]
  - Presyncope [Unknown]
  - Cystitis noninfective [Unknown]
  - Kidney infection [Unknown]
  - Nail infection [Unknown]
  - Blood creatinine increased [Unknown]
  - Dizziness [Unknown]
  - Anxiety [Unknown]
  - Urinary tract disorder [Unknown]
  - Hot flush [Unknown]
  - Hypotension [Unknown]
  - Seroma [Unknown]
  - Bronchitis [Unknown]
  - Infestation [Unknown]
  - Upper respiratory tract infection [Unknown]
  - Weight decreased [Unknown]
  - Hyperglycaemia [Unknown]
  - Joint effusion [Unknown]
  - Myositis [Unknown]
  - Second primary malignancy [Unknown]
  - Acute kidney injury [Unknown]
  - Menstruation irregular [Unknown]
  - Renal disorder [Unknown]
  - Infection [Unknown]
  - Urinary tract infection [Unknown]
  - International normalised ratio increased [Unknown]
  - Lipase increased [Unknown]
  - Decreased appetite [Unknown]
  - Hypoalbuminaemia [Unknown]
  - Neck pain [Unknown]
  - Nervous system disorder [Unknown]
  - Syncope [Unknown]
  - Epistaxis [Unknown]
